FAERS Safety Report 18255819 (Version 1)
Quarter: 2020Q3

REPORT INFORMATION
  Report Type: Other
  Country: US (occurrence: US)
  Receive Date: 20200910
  Receipt Date: 20200910
  Transmission Date: 20201103
  Serious: No
  Sender: FDA-Public Use
  Company Number: US-LEADIANT BIOSCIENCES INC-2019STPI000486

PATIENT

DRUGS (23)
  1. MATULANE [Suspect]
     Active Substance: PROCARBAZINE HYDROCHLORIDE
     Indication: DIFFUSE LARGE B-CELL LYMPHOMA
     Dosage: 150 MILLIGRAM QD
     Route: 048
     Dates: start: 20190829
  2. ONDANSETRON [Concomitant]
     Active Substance: ONDANSETRON
  3. ALLOPURINOL. [Concomitant]
     Active Substance: ALLOPURINOL
  4. ATORVASTATIN [Concomitant]
     Active Substance: ATORVASTATIN
  5. KEFLEX [Concomitant]
     Active Substance: CEPHALEXIN
  6. CYCLOPHOSPHAN [Concomitant]
     Active Substance: CYCLOPHOSPHAMIDE
  7. ETOPOSIDE. [Concomitant]
     Active Substance: ETOPOSIDE
  8. DEXAMETHASONE. [Concomitant]
     Active Substance: DEXAMETHASONE
  9. TYLENOL [Concomitant]
     Active Substance: ACETAMINOPHEN
  10. ASPIRIN [ACETYLSALICYLIC ACID] [Concomitant]
     Active Substance: ASPIRIN
  11. SODIUM CHLORIDE. [Concomitant]
     Active Substance: SODIUM CHLORIDE
  12. CARVEDILOL. [Concomitant]
     Active Substance: CARVEDILOL
  13. DOXORUBICIN [Concomitant]
     Active Substance: DOXORUBICIN
  14. LOSARTAN POTASSIUM. [Concomitant]
     Active Substance: LOSARTAN POTASSIUM
  15. SPIRONOLACTONE. [Concomitant]
     Active Substance: SPIRONOLACTONE
  16. FAMOTIDINE. [Concomitant]
     Active Substance: FAMOTIDINE
  17. PREDNISONE. [Concomitant]
     Active Substance: PREDNISONE
  18. ZOFRAN [Concomitant]
     Active Substance: ONDANSETRON HYDROCHLORIDE
  19. IBUPROFEN. [Concomitant]
     Active Substance: IBUPROFEN
  20. VINCRISTINE [Concomitant]
     Active Substance: VINCRISTINE
  21. PROCARBAZINE [Concomitant]
     Active Substance: PROCARBAZINE
  22. RITUXAN [Concomitant]
     Active Substance: RITUXIMAB
  23. PROCHLORPERAZINE. [Concomitant]
     Active Substance: PROCHLORPERAZINE

REACTIONS (1)
  - Neutropenia [Not Recovered/Not Resolved]
